FAERS Safety Report 19472178 (Version 1)
Quarter: 2021Q2

REPORT INFORMATION
  Report Type: Report from Study
  Country: IT (occurrence: IT)
  Receive Date: 20210629
  Receipt Date: 20210629
  Transmission Date: 20210717
  Serious: Yes (Hospitalization)
  Sender: FDA-Public Use
  Company Number: IT-ACCORD-229700

PATIENT
  Age: 76 Year
  Sex: Male

DRUGS (12)
  1. FLUOROURACILE HIKMA [Suspect]
     Active Substance: FLUOROURACIL
     Indication: COLON CANCER METASTATIC
     Dates: start: 20210314
  2. TAMSULOSIN [Concomitant]
     Active Substance: TAMSULOSIN
     Indication: BENIGN PROSTATIC HYPERPLASIA
  3. ACETYLSALICYLIC ACID [Concomitant]
     Active Substance: ASPIRIN
     Indication: ANTIPLATELET THERAPY
  4. AVASTIN [Suspect]
     Active Substance: BEVACIZUMAB
     Indication: COLON CANCER METASTATIC
     Dates: start: 20210314
  5. LANSOPRAZOLE. [Concomitant]
     Active Substance: LANSOPRAZOLE
     Indication: ANTACID THERAPY
  6. ATROPINE. [Concomitant]
     Active Substance: ATROPINE
     Indication: CHOLINERGIC SYNDROME
  7. ACCORD IRINOTECAN HYDROCHLORIDE TRIHYDRATE [IRINOTECAN HYDROCHLORIDE] [Suspect]
     Active Substance: IRINOTECAN HYDROCHLORIDE
     Indication: COLON CANCER METASTATIC
     Dates: start: 20210314
  8. ONDANSETRON [Concomitant]
     Active Substance: ONDANSETRON
     Indication: VOMITING
  9. DEXAMETHASONE. [Concomitant]
     Active Substance: DEXAMETHASONE
     Indication: ANTIINFLAMMATORY THERAPY
  10. CALCIUM LEVOFOLINATE [Concomitant]
     Active Substance: LEVOLEUCOVORIN CALCIUM
     Indication: COLON CANCER METASTATIC
     Dates: start: 20210314
  11. METOPROLOL. [Concomitant]
     Active Substance: METOPROLOL
     Indication: ANTIINFLAMMATORY THERAPY
  12. ATORVASTATIN [Concomitant]
     Active Substance: ATORVASTATIN
     Indication: HYPERCHOLESTEROLAEMIA

REACTIONS (11)
  - Periodontitis [Recovering/Resolving]
  - Asthenia [Recovering/Resolving]
  - Leukopenia [Recovering/Resolving]
  - Abdominal pain [Recovering/Resolving]
  - Epistaxis [Recovering/Resolving]
  - Middle insomnia [Recovering/Resolving]
  - Rhinorrhoea [Recovering/Resolving]
  - Stomatitis [Recovering/Resolving]
  - Haematochezia [Recovering/Resolving]
  - Gastrooesophageal reflux disease [Recovering/Resolving]
  - Diarrhoea [Recovering/Resolving]

NARRATIVE: CASE EVENT DATE: 20210314
